FAERS Safety Report 9746499 (Version 3)
Quarter: 2014Q2

REPORT INFORMATION
  Report Type: Spontaneous
  Country: US (occurrence: US)
  Receive Date: 20131211
  Receipt Date: 20140625
  Transmission Date: 20141212
  Serious: Yes (Hospitalization)
  Sender: FDA-Public Use
  Company Number: US-BAYER-2013-150611

PATIENT
  Age: 39 Year
  Sex: Female
  Weight: 75.96 kg

DRUGS (19)
  1. YAZ [Suspect]
     Indication: ACNE
     Dosage: UNK
     Dates: start: 2007, end: 2012
  2. PREDNISONE [Concomitant]
     Dosage: 10 MG, UNK
  3. AZITHROMYCIN [Concomitant]
     Dosage: 250 MG, UNK
  4. ISOMETHEPTENE/DICHLORALPHENAZONE/APAP [Concomitant]
  5. DIAZEPAM [Concomitant]
     Dosage: 10 MG, UNK
  6. HYDROCODONE/ACETAMINOPHEN [Concomitant]
     Dosage: 5-500 MG
  7. METHYLPREDNISOLONE [Concomitant]
     Dosage: 4 MG, UNK
  8. METHOCARBAMOL [Concomitant]
     Dosage: 500 MG, UNK
  9. GABAPENTIN [Concomitant]
     Dosage: 600 MG, UNK
  10. TRAMADOL [Concomitant]
     Dosage: 50 MG, UNK
  11. MELOXICAM [Concomitant]
     Dosage: 15 MG, UNK
  12. SERTRALINE [Concomitant]
     Dosage: 100 MG, UNK
  13. FENOFIBRATE [Concomitant]
     Dosage: 160 MG, UNK
  14. PANTOPRAZOLE [Concomitant]
     Dosage: 40 MG, UNK
  15. PROTONIX [Concomitant]
  16. PROAIR HFA [Concomitant]
  17. ZOLOFT [Concomitant]
  18. MORPHINE [Concomitant]
  19. ZOFRAN [Concomitant]

REACTIONS (4)
  - Pulmonary embolism [None]
  - Injury [None]
  - Pain [None]
  - Pain [None]
